FAERS Safety Report 12233326 (Version 1)
Quarter: 2016Q2

REPORT INFORMATION
  Report Type: Spontaneous
  Country: US (occurrence: None)
  Receive Date: 20160401
  Receipt Date: 20160401
  Transmission Date: 20160815
  Serious: No
  Sender: FDA-Public Use
  Company Number: None

PATIENT
  Age: 64 Year
  Sex: Male

DRUGS (1)
  1. ANDRODERM [Suspect]
     Active Substance: TESTOSTERONE
     Route: 062

REACTIONS (7)
  - Fatigue [None]
  - Irritability [None]
  - Application site pain [None]
  - Sexual dysfunction [None]
  - Drug ineffective [None]
  - Application site urticaria [None]
  - Product quality issue [None]
